FAERS Safety Report 8138421-6 (Version None)
Quarter: 2012Q1

REPORT INFORMATION
  Report Type: 
  Country: None (occurrence: None)
  Receive Date: 20120215
  Receipt Date: 20120209
  Transmission Date: 20120608
  Serious: Yes (Hospitalization)
  Sender: FDA-Public Use
  Company Number: IT-ABBOTT-12P-083-0900545-00

PATIENT
  Age: 21 Year
  Sex: Female

DRUGS (2)
  1. FLUOXETINE [Suspect]
     Indication: SUICIDE ATTEMPT
     Dosage: TOTAL: 360MG
     Route: 048
     Dates: start: 20120109, end: 20120109
  2. DEPAKENE [Suspect]
     Indication: SUICIDE ATTEMPT
     Dosage: TOTAL: 4GM
     Route: 048
     Dates: start: 20120109, end: 20120109

REACTIONS (2)
  - MULTIPLE DRUG OVERDOSE [None]
  - SOPOR [None]
